FAERS Safety Report 17316300 (Version 1)
Quarter: 2020Q1

REPORT INFORMATION
  Report Type: Spontaneous
  Country: US (occurrence: US)
  Receive Date: 20200124
  Receipt Date: 20200124
  Transmission Date: 20200409
  Serious: No
  Sender: FDA-Public Use
  Company Number: US-INSUD PHARMA-2001US00005

PATIENT

DRUGS (1)
  1. SLYND [Suspect]
     Active Substance: DROSPIRENONE
     Indication: CONTRACEPTION
     Dosage: 1 PILL/DAY
     Route: 048

REACTIONS (1)
  - Migraine [Unknown]
